FAERS Safety Report 5396213-5 (Version None)
Quarter: 2007Q3

REPORT INFORMATION
  Report Type: 
  Country: None (occurrence: None)
  Receive Date: 20070725
  Receipt Date: 20070717
  Transmission Date: 20080115
  Serious: Yes (Other)
  Sender: FDA-Public Use
  Company Number: PHFR2007GB01640

PATIENT
  Age: 33 Year
  Sex: Male

DRUGS (7)
  1. CLOZARIL [Suspect]
     Indication: SCHIZOPHRENIA
     Route: 048
     Dates: start: 20070517
  2. CLOZARIL [Suspect]
     Dosage: UNK, UNK
     Route: 048
     Dates: end: 20070326
  3. PAROXETINE [Concomitant]
     Indication: DEPRESSION
     Dosage: 20 MG, QD
     Route: 048
  4. VALPROATE SODIUM [Concomitant]
     Indication: DEPRESSION
     Dosage: 1 G, BID
     Route: 048
  5. THIAMINE [Concomitant]
     Indication: ALCOHOL USE
     Dosage: 100 MG, BID
     Route: 048
  6. BECOTIDE [Concomitant]
     Indication: ASTHMA
     Dosage: 2 DF, BID
  7. COMBIVENT                               /GFR/ [Concomitant]
     Indication: ASTHMA
     Dosage: 2 DF, BID

REACTIONS (1)
  - CELLULITIS [None]
